FAERS Safety Report 16704421 (Version 2)
Quarter: 2019Q4

REPORT INFORMATION
  Report Type: Spontaneous
  Country: US (occurrence: US)
  Receive Date: 20190814
  Receipt Date: 20191002
  Transmission Date: 20200122
  Serious: No
  Sender: FDA-Public Use
  Company Number: US-SA-2019SA218234

PATIENT
  Sex: Female
  Weight: 81.63 kg

DRUGS (4)
  1. CHANTIX [Concomitant]
     Active Substance: VARENICLINE TARTRATE
  2. PRALUENT [Suspect]
     Active Substance: ALIROCUMAB
     Indication: ARTERIOSCLEROSIS
     Dosage: 75 MG, QOW
     Route: 058
  3. DETROL [Concomitant]
     Active Substance: TOLTERODINE TARTRATE
  4. SYNTHROID [Concomitant]
     Active Substance: LEVOTHYROXINE SODIUM

REACTIONS (5)
  - Abdominal discomfort [Unknown]
  - Product quality issue [Unknown]
  - Malaise [Unknown]
  - Wrong product stored [Unknown]
  - Sneezing [Unknown]
